FAERS Safety Report 21397357 (Version 1)
Quarter: 2022Q3

REPORT INFORMATION
  Report Type: Spontaneous
  Country: US (occurrence: US)
  Receive Date: 20220930
  Receipt Date: 20220930
  Transmission Date: 20221026
  Serious: Yes (Death, Life-Threatening, Other)
  Sender: FDA-Public Use
  Company Number: US-AMGEN-USASP2022165965

PATIENT

DRUGS (4)
  1. FILGRASTIM [Suspect]
     Active Substance: FILGRASTIM
     Indication: Neutropenia
     Dosage: 5 MICROGRAM/KILOGRAM
     Route: 065
  2. LAPINE T-LYMPHOCYTE IMMUNE GLOBULIN [Concomitant]
     Active Substance: LAPINE T-LYMPHOCYTE IMMUNE GLOBULIN
     Dosage: UNK
  3. FLUDARABINE [Concomitant]
     Active Substance: FLUDARABINE PHOSPHATE
     Dosage: 30 MILLIGRAM/KILOGRAM
     Route: 040
  4. CYCLOPHOSPHAMIDE [Concomitant]
     Active Substance: CYCLOPHOSPHAMIDE
     Dosage: 14.5 MILLIGRAM/KILOGRAM
     Route: 040

REACTIONS (36)
  - Death [Fatal]
  - Transplant failure [Fatal]
  - Fungal infection [Fatal]
  - Organ failure [Fatal]
  - Encephalopathy [Fatal]
  - Interstitial lung disease [Fatal]
  - Renal disorder [Fatal]
  - Cardiovascular disorder [Fatal]
  - Gastrointestinal disorder [Fatal]
  - Unevaluable event [Fatal]
  - Respiratory disorder [Fatal]
  - Mediastinal disorder [Fatal]
  - Liver disorder [Unknown]
  - Acute graft versus host disease [Unknown]
  - Blood disorder [Unknown]
  - Lymphatic disorder [Unknown]
  - General physical health deterioration [Unknown]
  - Nervous system disorder [Unknown]
  - Haemorrhagic disorder [Unknown]
  - Immune system disorder [Unknown]
  - Metabolic disorder [Unknown]
  - Malnutrition [Unknown]
  - Post transplant lymphoproliferative disorder [Unknown]
  - Infection [Unknown]
  - Pericarditis [Unknown]
  - Viraemia [Recovered/Resolved]
  - Epstein-Barr viraemia [Recovered/Resolved]
  - Bacterial infection [Unknown]
  - Chronic graft versus host disease [Unknown]
  - Sinus tachycardia [Unknown]
  - Connective tissue disorder [Unknown]
  - Cardiac failure [Unknown]
  - Laboratory test abnormal [Unknown]
  - Investigation abnormal [Unknown]
  - Musculoskeletal disorder [Unknown]
  - Cytomegalovirus infection reactivation [Recovered/Resolved]
